FAERS Safety Report 26132494 (Version 1)
Quarter: 2025Q4

REPORT INFORMATION
  Report Type: Spontaneous
  Country: US (occurrence: None)
  Receive Date: 20251208
  Receipt Date: 20251208
  Transmission Date: 20260118
  Serious: No
  Sender: HALOZYME
  Company Number: US-HALOZYME THERAPEUTICS, INC.-2024-US-TX -09682

PATIENT
  Age: 49 Year

DRUGS (1)
  1. XYOSTED [Suspect]
     Active Substance: TESTOSTERONE ENANTHATE
     Indication: Hypogonadism
     Dosage: 100 MILLIGRAM, Q 1 WK
     Route: 058

REACTIONS (4)
  - Rash erythematous [Unknown]
  - Skin exfoliation [Unknown]
  - Rash pruritic [Unknown]
  - Rash [Unknown]
